FAERS Safety Report 11632783 (Version 1)
Quarter: 2015Q4

REPORT INFORMATION
  Report Type: Spontaneous
  Country: None (occurrence: None)
  Receive Date: 20151014
  Receipt Date: 20151014
  Transmission Date: 20160304
  Serious: Yes (Other)
  Sender: FDA-Public Use
  Company Number: None

PATIENT
  Age: 42 Year
  Sex: Male

DRUGS (1)
  1. LAMOTRIGINE 100 MG [Suspect]
     Active Substance: LAMOTRIGINE
     Indication: POST-TRAUMATIC STRESS DISORDER

REACTIONS (3)
  - Dry mouth [None]
  - Dermatitis [None]
  - Hyperhidrosis [None]

NARRATIVE: CASE EVENT DATE: 20151006
